FAERS Safety Report 16700463 (Version 2)
Quarter: 2019Q3

REPORT INFORMATION
  Report Type: Spontaneous
  Country: US (occurrence: US)
  Receive Date: 20190814
  Receipt Date: 20190827
  Transmission Date: 20191004
  Serious: Yes (Other)
  Sender: FDA-Public Use
  Company Number: US-ROCHE-2379537

PATIENT
  Age: 46 Year
  Sex: Female
  Weight: 109 kg

DRUGS (1)
  1. OCREVUS [Suspect]
     Active Substance: OCRELIZUMAB
     Indication: PRODUCT USED FOR UNKNOWN INDICATION
     Dosage: LAST INFUSION IN 16/MAY (UNSPECIFIED YEAR)
     Route: 065
     Dates: start: 201810

REACTIONS (3)
  - Herpes zoster oticus [Not Recovered/Not Resolved]
  - Facial paresis [Unknown]
  - Herpes zoster [Unknown]
